FAERS Safety Report 6369598-0 (Version None)
Quarter: 2009Q3

REPORT INFORMATION
  Report Type: 
  Country: None (occurrence: None)
  Receive Date: 20090923
  Receipt Date: 20090923
  Transmission Date: 20100115
  Serious: Yes (Hospitalization)
  Sender: FDA-Public Use
  Company Number: PHHO2009IL06850

PATIENT
  Sex: Male
  Weight: 85.5 kg

DRUGS (3)
  1. ALISKIREN ALI+TAB+HT [Suspect]
     Dosage: 150 MG, QD
     Route: 048
     Dates: start: 20090422
  2. AMLODIPINE [Suspect]
     Dosage: 5 MG, QD
  3. HYDROCHLOROTHIAZIDE [Suspect]
     Dosage: 12.5 MG, QD

REACTIONS (4)
  - CEREBROVASCULAR ACCIDENT [None]
  - DISEASE PROGRESSION [None]
  - GAIT DISTURBANCE [None]
  - VERTIGO [None]
